FAERS Safety Report 5617119-X (Version None)
Quarter: 2008Q1

REPORT INFORMATION
  Report Type: 
  Country: None (occurrence: None)
  Receive Date: 20080204
  Receipt Date: 20080118
  Transmission Date: 20080703
  Serious: Yes (Disabling, Other)
  Sender: FDA-Public Use
  Company Number: A-CH2007-18593

PATIENT
  Age: 77 Year
  Sex: Female
  Weight: 48 kg

DRUGS (9)
  1. TRACLEER [Suspect]
     Indication: PULMONARY HYPERTENSION
     Dosage: 125 MG, BID; ORAL, 62.5 MG, BID; ORAL
     Route: 048
     Dates: start: 20070804, end: 20070903
  2. TRACLEER [Suspect]
     Indication: PULMONARY HYPERTENSION
     Dosage: 125 MG, BID; ORAL, 62.5 MG, BID; ORAL
     Route: 048
     Dates: start: 20070904
  3. CANDESARTAN CILEXETIL [Suspect]
  4. SPIRONOLACTONE [Concomitant]
  5. FUROSEMIDE [Concomitant]
  6. OMEPRAZOLE [Concomitant]
  7. PRAVASTATIN [Concomitant]
  8. DILTIAZEM [Concomitant]
  9. ACETAMINOPHEN [Concomitant]

REACTIONS (1)
  - MANIA [None]
